FAERS Safety Report 5485809-8 (Version None)
Quarter: 2007Q4

REPORT INFORMATION
  Report Type: 
  Country: None (occurrence: None)
  Receive Date: 20071015
  Receipt Date: 20071005
  Transmission Date: 20080405
  Serious: Yes (Hospitalization, Other)
  Sender: FDA-Public Use
  Company Number: US-AMGEN-US215011

PATIENT
  Sex: Male

DRUGS (2)
  1. ENBREL [Suspect]
     Route: 064
     Dates: start: 20060214, end: 20060313
  2. ENBREL [Suspect]
     Route: 064
     Dates: start: 20060501, end: 20061101

REACTIONS (3)
  - BRONCHITIS [None]
  - PYLORIC STENOSIS [None]
  - RESPIRATORY SYNCYTIAL VIRUS INFECTION [None]
